FAERS Safety Report 9827536 (Version 2)
Quarter: 2014Q2

REPORT INFORMATION
  Report Type: Spontaneous
  Country: US (occurrence: US)
  Receive Date: 20140117
  Receipt Date: 20140414
  Transmission Date: 20141212
  Serious: No
  Sender: FDA-Public Use
  Company Number: US-BIOGENIDEC-2014BI001282

PATIENT
  Age: 43 Year
  Sex: Female

DRUGS (7)
  1. TECFIDERA [Suspect]
     Indication: MULTIPLE SCLEROSIS
     Route: 048
     Dates: start: 20140101
  2. TRAMADOL [Concomitant]
  3. VALIUM [Concomitant]
  4. BACLOFEN [Concomitant]
  5. VITAMIN D [Concomitant]
  6. VITAMIN B12 [Concomitant]
  7. MARINOL [Concomitant]

REACTIONS (10)
  - Spinal pain [Unknown]
  - Neck pain [Unknown]
  - Headache [Unknown]
  - Dizziness postural [Unknown]
  - Fatigue [Unknown]
  - Influenza like illness [Unknown]
  - Abasia [Unknown]
  - Diarrhoea [Unknown]
  - Abdominal pain upper [Unknown]
  - Abdominal pain [Unknown]
